FAERS Safety Report 26025184 (Version 1)
Quarter: 2025Q4

REPORT INFORMATION
  Report Type: Spontaneous
  Country: CN (occurrence: CN)
  Receive Date: 20251111
  Receipt Date: 20251111
  Transmission Date: 20260119
  Serious: Yes (Other)
  Sender: QILU PHARMACEUTICAL
  Company Number: CN-QILU PHARMACEUTICAL CO.LTD.-QLU-000289-2025

PATIENT
  Age: 36 Year
  Sex: Male

DRUGS (6)
  1. CISPLATIN [Suspect]
     Active Substance: CISPLATIN
     Indication: Keratinising squamous cell carcinoma of nasopharynx
     Dosage: 40 MG/M2 ON DAY 1-2
     Route: 065
     Dates: start: 20240326, end: 2024
  2. CISPLATIN [Suspect]
     Active Substance: CISPLATIN
     Dosage: 40 MG/M2 ON  DAYS 1-2 (CYCLES2 TO 6)
     Route: 065
     Dates: start: 20240510, end: 20240822
  3. GEMCITABINE [Suspect]
     Active Substance: GEMCITABINE
     Indication: Keratinising squamous cell carcinoma of nasopharynx
     Dosage: 1 G/M2 ON DAYS 1 AND 8
     Route: 065
     Dates: start: 20240326, end: 2024
  4. GEMCITABINE [Suspect]
     Active Substance: GEMCITABINE
     Dosage: 1 G/M2 ON DAYS 1 AND 8 (CYCLES 2 TO 6)
     Route: 065
     Dates: start: 20240510, end: 20240822
  5. TISLELIZUMAB [Suspect]
     Active Substance: TISLELIZUMAB
     Indication: Keratinising squamous cell carcinoma of nasopharynx
     Dosage: 200 MG ON DAY 1
     Route: 065
     Dates: start: 20240326, end: 2024
  6. TISLELIZUMAB [Suspect]
     Active Substance: TISLELIZUMAB
     Dosage: 200 MG ON DAY 1 (CYCLES 2 TO 6)
     Route: 065
     Dates: start: 20240510, end: 20240822

REACTIONS (4)
  - Epstein-Barr virus infection reactivation [Recovered/Resolved]
  - Cytomegalovirus infection reactivation [Recovered/Resolved]
  - Trigeminal neuralgia [Recovered/Resolved]
  - Drug effective for unapproved indication [Unknown]

NARRATIVE: CASE EVENT DATE: 20240101
